FAERS Safety Report 9707799 (Version 1)
Quarter: 2013Q4

REPORT INFORMATION
  Report Type: Spontaneous
  Country: FR (occurrence: None)
  Receive Date: 20131121
  Receipt Date: 20131121
  Transmission Date: 20140711
  Serious: Yes (Hospitalization)
  Sender: FDA-Public Use
  Company Number: 2014918

PATIENT
  Age: 66 Year
  Sex: Female

DRUGS (4)
  1. (CARBOPLATIN) [Suspect]
     Indication: OVARIAN EPITHELIAL CANCER
     Dosage: 397 MG MILLIGRAM(S), UNKNOWN, INTRAVENOUS DRIP
     Route: 041
     Dates: start: 20130212, end: 20130212
  2. (CORTANCYL) [Concomitant]
  3. (EMEND) [Concomitant]
  4. (ZOPHREN) [Concomitant]

REACTIONS (3)
  - Throat irritation [None]
  - Nausea [None]
  - Erythema [None]
